FAERS Safety Report 13949117 (Version 1)
Quarter: 2017Q3

REPORT INFORMATION
  Report Type: Spontaneous
  Country: US (occurrence: None)
  Receive Date: 20170908
  Receipt Date: 20170908
  Transmission Date: 20171128
  Serious: Yes (Death, Other)
  Sender: FDA-Public Use
  Company Number: None

PATIENT
  Age: 59 Year
  Sex: Female
  Weight: 78.11 kg

DRUGS (1)
  1. SUBOXONE [Suspect]
     Active Substance: BUPRENORPHINE HYDROCHLORIDE\NALOXONE HYDROCHLORIDE
     Indication: DRUG DEPENDENCE
     Dosage: ONE FILM 2X^S DAY SL, PO
     Route: 060
     Dates: start: 20170323, end: 20170327

REACTIONS (4)
  - Dehydration [None]
  - Asthenia [None]
  - Hypersensitivity [None]
  - Vomiting [None]

NARRATIVE: CASE EVENT DATE: 20170323
